FAERS Safety Report 5990222-0 (Version None)
Quarter: 2008Q4

REPORT INFORMATION
  Report Type: 
  Country: None (occurrence: None)
  Receive Date: 20081211
  Receipt Date: 20081203
  Transmission Date: 20090506
  Serious: Yes (Other)
  Sender: FDA-Public Use
  Company Number: GR-ABBOTT-08P-066-0466937-00

PATIENT
  Age: 52 Year
  Sex: Male

DRUGS (3)
  1. VALPROATE SODIUM [Suspect]
     Indication: PERSECUTORY DELUSION
     Route: 065
  2. OLANZAPINE [Concomitant]
     Indication: PERSECUTORY DELUSION
     Route: 065
  3. OTHER UNSPECIFIED DRUGS [Concomitant]
     Indication: DRUG USE FOR UNKNOWN INDICATION
     Dosage: NOT REPORTED

REACTIONS (2)
  - DELIRIUM [None]
  - ENCEPHALOPATHY [None]
